FAERS Safety Report 8029471 (Version 4)
Quarter: 2013Q2

REPORT INFORMATION
  Report Type: Report from Study
  Country: FR (occurrence: FR)
  Receive Date: 20110711
  Receipt Date: 20130410
  Transmission Date: 20140414
  Serious: Yes (Hospitalization, Other)
  Sender: FDA-Public Use
  Company Number: FR-VERTEX PHARMACEUTICALS INC.-AE-2011-000300

PATIENT
  Age: 58 Year
  Sex: Female
  Weight: 91 kg

DRUGS (13)
  1. VX-950 (TELAPREVIR) [Suspect]
     Indication: HEPATITIS C
     Dosage: 750 MG, TID
     Route: 048
     Dates: start: 20110221, end: 20110513
  2. PEGASYS [Suspect]
     Indication: HEPATITIS C
     Dosage: DOSAGE FORM: INJECTION
     Route: 058
     Dates: start: 20110221
  3. PEGASYS [Suspect]
     Dosage: DOSAGE FORM: INJECTION
     Route: 058
  4. COPEGUS [Suspect]
     Indication: HEPATITIS C
     Dosage: DOSAGE FORM: TABLET, 3 TABLETS MORNING, 4 TABLETS EVENING
     Route: 003
  5. COPEGUS [Suspect]
     Dosage: DOSAGE FORM: TABLET
     Route: 003
     Dates: start: 20110221
  6. DIPROSONE [Concomitant]
     Indication: RASH
     Dosage: UNK, BID
     Route: 065
     Dates: start: 20110313
  7. LOGROTON [Concomitant]
     Indication: HYPERTENSION
     Dosage: 1 DF, QD
     Route: 048
     Dates: start: 20080218
  8. LOGROTON [Concomitant]
     Dosage: HALF A TABLET A DAY
     Route: 048
  9. TOCO [Concomitant]
     Indication: INSULIN RESISTANCE
     Dosage: DOSAGE FORM: UNSPECIFIED
     Route: 048
     Dates: start: 20090913
  10. DEXERYL [Concomitant]
     Indication: PROPHYLAXIS
     Dosage: DOSAGE FORM: UNSPECIFIED
     Route: 003
     Dates: start: 20110221
  11. DEXERYL [Concomitant]
     Indication: DRY SKIN PROPHYLAXIS
  12. DEXERYL [Concomitant]
     Indication: RASH
  13. NEORECORMON [Concomitant]
     Indication: ANAEMIA
     Dosage: DOSAGE FORM: INJECTION
     Route: 065
     Dates: start: 20110419

REACTIONS (6)
  - Asthenia [Not Recovered/Not Resolved]
  - Gastrointestinal motility disorder [Unknown]
  - Pancytopenia [Unknown]
  - Anaemia [Recovered/Resolved]
  - Hypokalaemia [Unknown]
  - Drug reaction with eosinophilia and systemic symptoms [Recovered/Resolved]
